FAERS Safety Report 6866596-5 (Version None)
Quarter: 2010Q2

REPORT INFORMATION
  Report Type: 
  Country: None (occurrence: None)
  Receive Date: 20100603
  Receipt Date: 20100314
  Transmission Date: 20101027
  Serious: Yes (Other)
  Sender: FDA-Public Use
  Company Number: US-SEPTODONT-201000084

PATIENT
  Age: 49 Year
  Sex: Female
  Weight: 49.8 kg

DRUGS (1)
  1. SEPTOCAINE [Suspect]
     Indication: LOCAL ANAESTHESIA
     Dosage: 5 DOSES, DENTAL
     Route: 004
     Dates: start: 20090602

REACTIONS (4)
  - CONFUSIONAL STATE [None]
  - DRUG INEFFECTIVE [None]
  - SWELLING FACE [None]
  - TRISMUS [None]
